FAERS Safety Report 8325535-0 (Version None)
Quarter: 2012Q2

REPORT INFORMATION
  Report Type: 
  Country: None (occurrence: None)
  Receive Date: 20120427
  Receipt Date: 20120425
  Transmission Date: 20120825
  Serious: Yes (Hospitalization)
  Sender: FDA-Public Use
  Company Number: ADR-2010-9213

PATIENT
  Sex: Male

DRUGS (1)
  1. LIORESAL [Suspect]
     Indication: MUSCLE SPASTICITY
     Dosage: MCG, DAILY, INTRATH
     Route: 037

REACTIONS (5)
  - MENTAL STATUS CHANGES [None]
  - SOMNOLENCE [None]
  - DISORIENTATION [None]
  - OVERDOSE [None]
  - GAIT DISTURBANCE [None]
